FAERS Safety Report 12767071 (Version 2)
Quarter: 2016Q4

REPORT INFORMATION
  Report Type: Spontaneous
  Country: US (occurrence: US)
  Receive Date: 20160921
  Receipt Date: 20161207
  Transmission Date: 20170207
  Serious: No
  Sender: FDA-Public Use
  Company Number: US-ACTELION-A-NJ2016-140934

PATIENT
  Age: 63 Year
  Sex: Female

DRUGS (5)
  1. PROCARDIA [Concomitant]
     Active Substance: NIFEDIPINE
  2. AMBRISENTAN [Suspect]
     Active Substance: AMBRISENTAN
     Indication: PRODUCT USED FOR UNKNOWN INDICATION
     Dosage: 10 MG, QD
     Route: 065
     Dates: start: 20120109
  3. SILDENAFIL. [Concomitant]
     Active Substance: SILDENAFIL
  4. VENTAVIS [Suspect]
     Active Substance: ILOPROST
     Indication: PRODUCT USED FOR UNKNOWN INDICATION
     Route: 055
  5. UPTRAVI [Suspect]
     Active Substance: SELEXIPAG
     Indication: PRODUCT USED FOR UNKNOWN INDICATION
     Route: 048

REACTIONS (9)
  - Insomnia [Unknown]
  - Back pain [Unknown]
  - Arthralgia [Unknown]
  - Musculoskeletal pain [Unknown]
  - Abdominal discomfort [Unknown]
  - Cough [Unknown]
  - Pain in jaw [Unknown]
  - Fatigue [Unknown]
  - Pain [Unknown]
